FAERS Safety Report 4805759-7 (Version None)
Quarter: 2005Q4

REPORT INFORMATION
  Report Type: 
  Country: None (occurrence: None)
  Receive Date: 20051021
  Receipt Date: 20031028
  Transmission Date: 20060501
  Serious: Yes (Hospitalization)
  Sender: FDA-Public Use
  Company Number: US-ROCHE-350337

PATIENT
  Age: 42 Year
  Sex: Male
  Weight: 87.1 kg

DRUGS (17)
  1. FUZEON [Suspect]
     Indication: HIV INFECTION
     Route: 058
     Dates: start: 20030726
  2. FUZEON [Suspect]
     Route: 058
  3. FUZEON [Suspect]
     Route: 058
     Dates: start: 20040404
  4. GROWTH HORMONE [Concomitant]
     Route: 050
  5. VIREAD [Concomitant]
     Indication: HIV INFECTION
  6. EPIVIR [Concomitant]
     Indication: HIV INFECTION
  7. XANAX [Concomitant]
     Indication: ANXIETY
     Route: 048
  8. PAXIL [Concomitant]
  9. BUSPAR [Concomitant]
     Indication: ANXIETY
     Route: 048
  10. HYDROXYZINE [Concomitant]
     Indication: DRUG USE FOR UNKNOWN INDICATION
     Route: 048
  11. DIAZEPAM [Concomitant]
     Route: 048
  12. AMITRIPTYLINE HCL [Concomitant]
  13. LASIX [Concomitant]
     Indication: OEDEMA
     Route: 048
  14. NEURONTIN [Concomitant]
     Route: 048
  15. URECHOLINE [Concomitant]
     Route: 048
  16. PROTONIX [Concomitant]
     Route: 048
  17. GEMFIBROZIL [Concomitant]
     Indication: HYPERTRIGLYCERIDAEMIA
     Route: 048

REACTIONS (3)
  - CELLULITIS [None]
  - PNEUMONIA [None]
  - PYREXIA [None]
